FAERS Safety Report 6891849-4 (Version None)
Quarter: 2010Q3

REPORT INFORMATION
  Report Type: 
  Country: None (occurrence: None)
  Receive Date: 20100731
  Receipt Date: 20071117
  Transmission Date: 20110219
  Serious: No
  Sender: FDA-Public Use
  Company Number: US-PFIZER INC-2007098136

PATIENT
  Sex: Female
  Weight: 77.3 kg

DRUGS (6)
  1. GABAPENTIN [Suspect]
     Indication: NEURALGIA
     Dates: start: 20071101
  2. TOPROL-XL [Concomitant]
  3. HYDROCHLOROTHIAZIDE [Concomitant]
     Indication: HYPERTENSION
  4. MACRODANTIN [Concomitant]
     Indication: BLADDER PAIN
  5. PHENAZOPYRIDINE HCL TAB [Concomitant]
     Indication: BLADDER PAIN
  6. DRUG, UNSPECIFIED [Concomitant]

REACTIONS (2)
  - BLADDER PAIN [None]
  - MUSCULOSKELETAL DISCOMFORT [None]
